FAERS Safety Report 9516714 (Version 1)
Quarter: 2013Q3

REPORT INFORMATION
  Report Type: Spontaneous
  Country: US (occurrence: None)
  Receive Date: 20130910
  Receipt Date: 20130910
  Transmission Date: 20140515
  Serious: Yes (Disabling, Other)
  Sender: FDA-Public Use
  Company Number: None

PATIENT
  Age: 63 Year
  Sex: Female
  Weight: 163 kg

DRUGS (17)
  1. MYRBETRIQ [Suspect]
     Indication: URINARY INCONTINENCE
     Dosage: 1 PILL
     Route: 048
     Dates: start: 20130908, end: 20130909
  2. INTERSTIM INPLANTED DEVICE [Concomitant]
  3. FLECAINADE ACETATE [Concomitant]
  4. ESTRACE [Concomitant]
  5. FLONASE [Concomitant]
  6. ZYRTEC [Concomitant]
  7. ALPRAZOLAM [Concomitant]
  8. IMITREX [Concomitant]
  9. FLEXERIL [Concomitant]
  10. NAPROXEN [Concomitant]
  11. ASPIRIN [Concomitant]
  12. MULTIPLE VITAMIN [Concomitant]
  13. D3 [Concomitant]
  14. CALCIUM [Concomitant]
  15. VIT C [Concomitant]
  16. BIOTIN [Concomitant]
  17. FISH OIL [Concomitant]

REACTIONS (5)
  - Middle insomnia [None]
  - Palpitations [None]
  - Dysgeusia [None]
  - Chest discomfort [None]
  - Atrial fibrillation [None]
